FAERS Safety Report 11541133 (Version 1)
Quarter: 2015Q3

REPORT INFORMATION
  Report Type: Report from Study
  Country: JP (occurrence: JP)
  Receive Date: 20150923
  Receipt Date: 20150923
  Transmission Date: 20151125
  Serious: Yes (Other)
  Sender: FDA-Public Use
  Company Number: JP-JNJFOC-20150618892

PATIENT
  Age: 61 Year
  Sex: Male

DRUGS (4)
  1. PEGINTRON [Suspect]
     Active Substance: PEGINTERFERON ALFA-2B
     Indication: CHRONIC HEPATITIS C
     Route: 058
     Dates: start: 20150109
  2. SOVRIAD [Suspect]
     Active Substance: SIMEPREVIR
     Indication: CHRONIC HEPATITIS C
     Route: 065
     Dates: start: 20150109, end: 20150403
  3. RIBAVIRIN. [Suspect]
     Active Substance: RIBAVIRIN
     Indication: CHRONIC HEPATITIS C
     Route: 048
     Dates: start: 20150109
  4. REBAMIPIDE [Concomitant]
     Active Substance: REBAMIPIDE
     Indication: PROPHYLAXIS
     Route: 048
     Dates: start: 20150109

REACTIONS (7)
  - Retinal exudates [Recovering/Resolving]
  - Platelet count decreased [Recovered/Resolved]
  - Haemoglobin decreased [Not Recovered/Not Resolved]
  - Retinal haemorrhage [Recovering/Resolving]
  - Rhinitis allergic [Not Recovered/Not Resolved]
  - Conjunctivitis allergic [Not Recovered/Not Resolved]
  - Eczema [Not Recovered/Not Resolved]

NARRATIVE: CASE EVENT DATE: 20150116
